FAERS Safety Report 9303971 (Version 2)
Quarter: 2013Q3

REPORT INFORMATION
  Report Type: Spontaneous
  Country: FR (occurrence: FR)
  Receive Date: 20130522
  Receipt Date: 20130701
  Transmission Date: 20140515
  Serious: Yes (Other)
  Sender: FDA-Public Use
  Company Number: PHHY2013FR050279

PATIENT
  Age: 57 Year
  Sex: Male
  Weight: 95 kg

DRUGS (4)
  1. MONTELUKAST SANDOZ [Suspect]
     Indication: ALLERGIC RESPIRATORY SYMPTOM
     Dosage: 10 MG, QD
     Route: 048
     Dates: start: 20130329, end: 20130409
  2. MUCOMYST [Concomitant]
     Dosage: 3 DF, DAILY
     Dates: start: 20130329, end: 20130404
  3. CARTEOL [Concomitant]
     Indication: OCULAR HYPERTENSION
     Dosage: 2 DF, DAILY
     Dates: start: 20071109
  4. BIPRETERAX [Concomitant]
     Indication: HYPERTENSION
     Dosage: 1 DF, DAILY
     Dates: start: 20110623

REACTIONS (7)
  - Disturbance in attention [Unknown]
  - Depression [Unknown]
  - Suicidal ideation [Unknown]
  - Aggression [Unknown]
  - Insomnia [Recovering/Resolving]
  - Irritability [Unknown]
  - Erythema [Unknown]
